FAERS Safety Report 5927232-5 (Version None)
Quarter: 2008Q4

REPORT INFORMATION
  Report Type: 
  Country: None (occurrence: None)
  Receive Date: 20081022
  Receipt Date: 20081014
  Transmission Date: 20090506
  Serious: Yes (Other)
  Sender: FDA-Public Use
  Company Number: GB-AMGEN-UK312341

PATIENT
  Sex: Female
  Weight: 60 kg

DRUGS (7)
  1. VECTIBIX [Suspect]
     Indication: COLORECTAL CANCER
     Route: 042
     Dates: start: 20080728
  2. UNSPECIFIED ANTINEOPLASTIC AGENT [Concomitant]
     Route: 065
  3. CIPROFLOXACIN [Concomitant]
     Route: 048
     Dates: start: 20080814, end: 20080828
  4. LANSOPRAZOLE [Concomitant]
     Route: 048
     Dates: start: 20080814, end: 20080828
  5. PREDNISOLONE SODIUM PHOSPHATE [Concomitant]
     Route: 050
     Dates: start: 20080826, end: 20080902
  6. BETAHISTINE [Concomitant]
     Route: 048
     Dates: start: 20080903
  7. DEXAMETHASONE [Concomitant]
     Route: 048
     Dates: start: 20080814, end: 20080828

REACTIONS (1)
  - CHORIORETINOPATHY [None]
